FAERS Safety Report 5555502-1 (Version None)
Quarter: 2007Q4

REPORT INFORMATION
  Report Type: 
  Country: None (occurrence: None)
  Receive Date: 20071213
  Receipt Date: 20070819
  Transmission Date: 20080405
  Serious: No
  Sender: FDA-Public Use
  Company Number: US-AMGEN-KDL239546

PATIENT
  Sex: Female

DRUGS (3)
  1. ENBREL [Suspect]
     Indication: RHEUMATOID ARTHRITIS
     Route: 058
     Dates: start: 20070307
  2. PLAQUENIL [Concomitant]
     Route: 048
     Dates: start: 20060401
  3. METHOTREXATE [Concomitant]
     Route: 048
     Dates: start: 20060701

REACTIONS (2)
  - OSTEOARTHRITIS [None]
  - PAIN IN EXTREMITY [None]
